FAERS Safety Report 6628397-2 (Version None)
Quarter: 2010Q1

REPORT INFORMATION
  Report Type: 
  Country: None (occurrence: None)
  Receive Date: 20100301
  Receipt Date: 20090922
  Transmission Date: 20100710
  Serious: Yes (Hospitalization)
  Sender: FDA-Public Use
  Company Number: RV-20769-2009

PATIENT
  Age: 39 Year
  Sex: Male

DRUGS (2)
  1. SUBOXONE [Suspect]
     Indication: DRUG DEPENDENCE
     Dosage: 12 MG QD SUBLINGUAL, 16 MG BID SUBLINGUAL
     Route: 060
     Dates: start: 20090915, end: 20090915
  2. SUBOXONE [Suspect]
     Indication: DRUG DEPENDENCE
     Dosage: 12 MG QD SUBLINGUAL, 16 MG BID SUBLINGUAL
     Route: 060
     Dates: start: 20090917, end: 20090921

REACTIONS (6)
  - BLINDNESS TRANSIENT [None]
  - CLAVICLE FRACTURE [None]
  - DRUG WITHDRAWAL SYNDROME [None]
  - FALL [None]
  - RIB FRACTURE [None]
  - STERNAL FRACTURE [None]
